FAERS Safety Report 16649089 (Version 1)
Quarter: 2019Q3

REPORT INFORMATION
  Report Type: Report from Study
  Country: CA (occurrence: CA)
  Receive Date: 20190730
  Receipt Date: 20190730
  Transmission Date: 20191004
  Serious: Yes (Hospitalization)
  Sender: FDA-Public Use
  Company Number: CA-ACTELION-A-NJ2019-192278

PATIENT
  Sex: Female

DRUGS (15)
  1. MOTILIUM [Concomitant]
     Active Substance: DOMPERIDONE
  2. NEXIUM [Concomitant]
     Active Substance: ESOMEPRAZOLE MAGNESIUM
  3. OPSUMIT [Suspect]
     Active Substance: MACITENTAN
     Indication: PULMONARY ARTERIAL HYPERTENSION
     Dosage: 10 MG, QD
     Route: 048
     Dates: start: 20190604
  4. LEVOTHYROXINE. [Concomitant]
     Active Substance: LEVOTHYROXINE
  5. INVOKANA [Concomitant]
     Active Substance: CANAGLIFLOZIN
  6. VITAMIN D [Concomitant]
     Active Substance: VITAMIN D NOS
  7. METFORMIN [Concomitant]
     Active Substance: METFORMIN HYDROCHLORIDE
  8. FUROSEMIDE. [Concomitant]
     Active Substance: FUROSEMIDE
  9. PREGABALIN. [Concomitant]
     Active Substance: PREGABALIN
  10. CRESTOR [Concomitant]
     Active Substance: ROSUVASTATIN CALCIUM
  11. LANTUS [Concomitant]
     Active Substance: INSULIN GLARGINE
  12. NOVORAPID [Concomitant]
     Active Substance: INSULIN ASPART
  13. ASA [Concomitant]
     Active Substance: ASPIRIN
  14. VITAMIN B12 [Concomitant]
     Active Substance: CYANOCOBALAMIN
  15. METOPROLOL. [Concomitant]
     Active Substance: METOPROLOL

REACTIONS (2)
  - Headache [Unknown]
  - Renal impairment [Not Recovered/Not Resolved]
